FAERS Safety Report 14752847 (Version 3)
Quarter: 2018Q3

REPORT INFORMATION
  Report Type: Spontaneous
  Country: US (occurrence: US)
  Receive Date: 20180412
  Receipt Date: 20180828
  Transmission Date: 20181010
  Serious: Yes (Death, Hospitalization)
  Sender: FDA-Public Use
  Company Number: US-BAYER-2018-066054

PATIENT
  Age: 79 Year
  Sex: Male

DRUGS (1)
  1. XOFIGO [Suspect]
     Active Substance: RADIUM RA-223 DICHLORIDE
     Dosage: 114.4 MCI, ONCE
     Dates: start: 20171129

REACTIONS (2)
  - Gastrointestinal haemorrhage [None]
  - Death [Fatal]

NARRATIVE: CASE EVENT DATE: 201801
